FAERS Safety Report 6882831-1 (Version None)
Quarter: 2010Q3

REPORT INFORMATION
  Report Type: 
  Country: None (occurrence: None)
  Receive Date: 20100729
  Receipt Date: 20100723
  Transmission Date: 20110219
  Serious: Yes (Other)
  Sender: FDA-Public Use
  Company Number: DE-AMGEN-KDC426470

PATIENT

DRUGS (8)
  1. NEULASTA [Suspect]
     Indication: CHEMOTHERAPY
     Dates: start: 20100722, end: 20100722
  2. ADRIAMYCIN PFS [Concomitant]
     Dates: start: 20100719, end: 20100719
  3. PROCARBAZINE HYDROCHLORIDE [Concomitant]
     Dates: start: 20100719, end: 20100722
  4. ETOPOSIDE [Concomitant]
     Dates: start: 20100719, end: 20100721
  5. CYCLOPHOSPHAMIDE [Concomitant]
     Dates: start: 20100719, end: 20100719
  6. PREDNISONE [Concomitant]
     Dates: start: 20100719, end: 20100722
  7. GRANISETRON HCL [Concomitant]
     Dates: start: 20100719, end: 20100721
  8. UROMITEXAN [Concomitant]
     Dates: start: 20100719, end: 20100719

REACTIONS (3)
  - ANAPHYLACTIC SHOCK [None]
  - CIRCULATORY COLLAPSE [None]
  - VOMITING [None]
